FAERS Safety Report 10692633 (Version 1)
Quarter: 2015Q1

REPORT INFORMATION
  Report Type: Spontaneous
  Country: FR (occurrence: FR)
  Receive Date: 20150106
  Receipt Date: 20150106
  Transmission Date: 20150720
  Serious: Yes (Death, Hospitalization, Other)
  Sender: FDA-Public Use
  Company Number: FR-BRISTOL-MYERS SQUIBB COMPANY-BMS-2014-004578

PATIENT
  Age: 92 Year
  Sex: Male

DRUGS (11)
  1. COUMADINE [Suspect]
     Active Substance: WARFARIN SODIUM
     Indication: PRODUCT USED FOR UNKNOWN INDICATION
     Dosage: 1 DF, QD
     Route: 048
  2. CORDARONE [Concomitant]
     Active Substance: AMIODARONE HYDROCHLORIDE
  3. AMLODIPINE [Concomitant]
     Active Substance: AMLODIPINE BESYLATE
  4. ATORVASTATIN [Concomitant]
     Active Substance: ATORVASTATIN
  5. THERALENE [Concomitant]
     Active Substance: TRIMEPRAZINE
  6. OFLOCET                            /00731801/ [Concomitant]
     Active Substance: OFLOXACIN
  7. EMLA [Concomitant]
     Active Substance: LIDOCAINE\PRILOCAINE
  8. OXYCODONE HYDROCHLORIDE. [Concomitant]
     Active Substance: OXYCODONE HYDROCHLORIDE
  9. COAPROVEL [Concomitant]
     Active Substance: HYDROCHLOROTHIAZIDE\IRBESARTAN
  10. DAFALGAN [Concomitant]
     Active Substance: ACETAMINOPHEN
  11. MORPHINE [Concomitant]
     Active Substance: MORPHINE

REACTIONS (6)
  - Ischaemic stroke [Unknown]
  - Pulmonary congestion [Unknown]
  - Death [Fatal]
  - Subdural haematoma [Recovering/Resolving]
  - Acute kidney injury [Unknown]
  - Urinary tract infection [Unknown]

NARRATIVE: CASE EVENT DATE: 20141109
